FAERS Safety Report 24547443 (Version 1)
Quarter: 2024Q4

REPORT INFORMATION
  Report Type: Spontaneous
  Country: US (occurrence: US)
  Receive Date: 20241025
  Receipt Date: 20241025
  Transmission Date: 20250114
  Serious: Yes (Other)
  Sender: SANOFI AVENTIS
  Company Number: US-SA-2024SA307884

PATIENT
  Sex: Female
  Weight: 115.74 kg

DRUGS (1)
  1. KEVZARA [Suspect]
     Active Substance: SARILUMAB
     Indication: Rheumatoid arthritis
     Dosage: 150 MG, QOW
     Route: 058

REACTIONS (3)
  - Rheumatoid arthritis [Unknown]
  - Musculoskeletal stiffness [Recovering/Resolving]
  - Incorrect dose administered [Unknown]
